FAERS Safety Report 16194383 (Version 2)
Quarter: 2019Q2

REPORT INFORMATION
  Report Type: Spontaneous
  Country: FR (occurrence: FR)
  Receive Date: 20190414
  Receipt Date: 20190613
  Transmission Date: 20190711
  Serious: Yes (Hospitalization, Congenital Anomaly)
  Sender: FDA-Public Use
  Company Number: FR-TEVA-2019-FR-1036340

PATIENT
  Age: 61 Year
  Sex: Male
  Weight: 61.5 kg

DRUGS (1)
  1. FLUOROURACIL. [Suspect]
     Active Substance: FLUOROURACIL
     Indication: MALIGNANT ANORECTAL NEOPLASM
     Dosage: 5500 MILLIGRAM
     Route: 042
     Dates: start: 20190311, end: 20190314

REACTIONS (3)
  - Aplasia [Recovered/Resolved]
  - Mucosal inflammation [Not Recovered/Not Resolved]
  - Product prescribing error [Recovered/Resolved]

NARRATIVE: CASE EVENT DATE: 20190311
